FAERS Safety Report 11198739 (Version 1)
Quarter: 2015Q2

REPORT INFORMATION
  Report Type: Spontaneous
  Country: CO (occurrence: None)
  Receive Date: 20150616
  Receipt Date: 20150616
  Transmission Date: 20150821
  Serious: Yes (Death, Other)
  Sender: FDA-Public Use
  Company Number: CO2015GSK082681

PATIENT
  Age: 65 Year
  Sex: Male

DRUGS (3)
  1. CELSENTRI (MARAVIROC) FILM-COATED TABLET [Suspect]
     Active Substance: MARAVIROC
     Indication: HIV INFECTION
     Route: 048
     Dates: start: 20140414
  2. PREZISTA [Concomitant]
     Active Substance: DARUNAVIR ETHANOLATE
  3. TRUVADA (TENOFOVIR, EMTRICITABINE) [Concomitant]

REACTIONS (1)
  - Non-Hodgkin^s lymphoma [None]
